FAERS Safety Report 7414477-0 (Version None)
Quarter: 2011Q2

REPORT INFORMATION
  Report Type: 
  Country: None (occurrence: None)
  Receive Date: 20110407
  Receipt Date: 20110328
  Transmission Date: 20111010
  Serious: Yes (Hospitalization)
  Sender: FDA-Public Use
  Company Number: DAV-AE-MTX-11-030

PATIENT
  Age: 51 Year
  Sex: Female

DRUGS (1)
  1. METHOTREXATE [Suspect]
     Indication: PSORIASIS
     Dosage: 15MG/WK

REACTIONS (5)
  - ARTHRALGIA [None]
  - BLOOD ALKALINE PHOSPHATASE INCREASED [None]
  - TIBIA FRACTURE [None]
  - OSTEOPENIA [None]
  - BONE MARROW RETICULIN FIBROSIS [None]
